FAERS Safety Report 21881611 (Version 1)
Quarter: 2023Q1

REPORT INFORMATION
  Report Type: Other
  Country: US (occurrence: US)
  Receive Date: 20230119
  Receipt Date: 20230119
  Transmission Date: 20230418
  Serious: Yes (Death, Hospitalization)
  Sender: FDA-Public Use
  Company Number: US-Bion-011045

PATIENT
  Age: 60 Year
  Sex: Male

DRUGS (8)
  1. BEXAROTENE [Suspect]
     Active Substance: BEXAROTENE
     Indication: Cutaneous T-cell lymphoma
     Route: 048
  2. CETIRIZINE [Suspect]
     Active Substance: CETIRIZINE HYDROCHLORIDE
     Indication: Cutaneous T-cell lymphoma
  3. NAPROXEN SODIUM [Suspect]
     Active Substance: NAPROXEN SODIUM
     Indication: Cutaneous T-cell lymphoma
  4. HYDROCORTISONE [Concomitant]
     Active Substance: HYDROCORTISONE
     Indication: Cutaneous T-cell lymphoma
  5. GABAPENTIN [Concomitant]
     Active Substance: GABAPENTIN
     Indication: Cutaneous T-cell lymphoma
  6. PREDNISONE [Concomitant]
     Active Substance: PREDNISONE
     Indication: Cutaneous T-cell lymphoma
  7. CLOBETASOL [Concomitant]
     Active Substance: CLOBETASOL
     Indication: Cutaneous T-cell lymphoma
  8. DESONIDE [Concomitant]
     Active Substance: DESONIDE
     Indication: Cutaneous T-cell lymphoma

REACTIONS (1)
  - Drug ineffective for unapproved indication [Fatal]
